FAERS Safety Report 9343223 (Version 1)
Quarter: 2013Q2

REPORT INFORMATION
  Report Type: Spontaneous
  Country: DE (occurrence: DE)
  Receive Date: 20130611
  Receipt Date: 20130611
  Transmission Date: 20140414
  Serious: Yes (Other)
  Sender: FDA-Public Use
  Company Number: DE-B.I. PHARMACEUTICALS,INC./RIDGEFIELD-2013-DE-01561DE

PATIENT
  Sex: Male

DRUGS (3)
  1. SIFROL [Suspect]
     Indication: RESTLESS LEGS SYNDROME
  2. MIRAPEXIN [Suspect]
     Indication: RESTLESS LEGS SYNDROME
     Dates: start: 201106
  3. MADOPAR [Concomitant]
     Indication: RESTLESS LEGS SYNDROME

REACTIONS (10)
  - Drug ineffective [Unknown]
  - Coordination abnormal [Unknown]
  - Restlessness [Unknown]
  - Coordination abnormal [Unknown]
  - Coordination abnormal [Unknown]
  - Coordination abnormal [Unknown]
  - Condition aggravated [Unknown]
  - Condition aggravated [Unknown]
  - Product quality issue [Unknown]
  - Condition aggravated [Unknown]
